FAERS Safety Report 22012836 (Version 26)
Quarter: 2025Q3

REPORT INFORMATION
  Report Type: Report from Study
  Country: US (occurrence: US)
  Receive Date: 20230220
  Receipt Date: 20250805
  Transmission Date: 20251020
  Serious: Yes (Hospitalization, Other)
  Sender: TAKEDA
  Company Number: US-TAKEDA-2021TUS059000

PATIENT
  Age: 65 Year
  Sex: Female
  Weight: 81 kg

DRUGS (76)
  1. .ALPHA.1-PROTEINASE INHIBITOR HUMAN [Suspect]
     Active Substance: .ALPHA.1-PROTEINASE INHIBITOR HUMAN
     Indication: Alpha-1 antitrypsin deficiency
     Dosage: UNK, 1/WEEK
     Dates: start: 20190620
  2. .ALPHA.1-PROTEINASE INHIBITOR HUMAN [Suspect]
     Active Substance: .ALPHA.1-PROTEINASE INHIBITOR HUMAN
     Dosage: UNK UNK, 1/WEEK
     Dates: start: 20210626
  3. .ALPHA.1-PROTEINASE INHIBITOR HUMAN [Suspect]
     Active Substance: .ALPHA.1-PROTEINASE INHIBITOR HUMAN
     Dosage: UNK UNK, 1/WEEK
     Dates: start: 20210824
  4. .ALPHA.1-PROTEINASE INHIBITOR HUMAN [Suspect]
     Active Substance: .ALPHA.1-PROTEINASE INHIBITOR HUMAN
     Dosage: 60 MILLIGRAM/KILOGRAM, 1/WEEK
  5. .ALPHA.1-PROTEINASE INHIBITOR HUMAN [Suspect]
     Active Substance: .ALPHA.1-PROTEINASE INHIBITOR HUMAN
     Dosage: 4288 MILLIGRAM, 1/WEEK
  6. .ALPHA.1-PROTEINASE INHIBITOR HUMAN [Suspect]
     Active Substance: .ALPHA.1-PROTEINASE INHIBITOR HUMAN
     Dosage: 60 MILLIGRAM/KILOGRAM, 1/WEEK
     Dates: start: 20240912
  7. .ALPHA.1-PROTEINASE INHIBITOR HUMAN [Suspect]
     Active Substance: .ALPHA.1-PROTEINASE INHIBITOR HUMAN
     Dosage: 60 MG/KG, 1/WEEK
  8. EPINEPHRINE [Concomitant]
     Active Substance: EPINEPHRINE
  9. ZYRTEC [Concomitant]
     Active Substance: CETIRIZINE HYDROCHLORIDE
  10. FUROSEMIDE [Concomitant]
     Active Substance: FUROSEMIDE
  11. DULOXETINE [Concomitant]
     Active Substance: DULOXETINE
  12. VENLAFAXINE HCL [Concomitant]
     Active Substance: VENLAFAXINE HYDROCHLORIDE
  13. HYDROXYZINE HYDROCHLORIDE [Concomitant]
     Active Substance: HYDROXYZINE HYDROCHLORIDE
  14. TRAZODONE [Concomitant]
     Active Substance: TRAZODONE HYDROCHLORIDE
  15. SODIUM CHLORIDE [Concomitant]
     Active Substance: SODIUM CHLORIDE
  16. BREZTRI [Concomitant]
     Active Substance: BUDESONIDE\FORMOTEROL\GLYCOPYRROLATE
  17. MIRTAZAPINE [Concomitant]
     Active Substance: MIRTAZAPINE
  18. PROTONIX [Concomitant]
     Active Substance: PANTOPRAZOLE SODIUM
  19. INSULIN ASPART [Concomitant]
     Active Substance: INSULIN ASPART
  20. ALBUTEROL SULFATE [Concomitant]
     Active Substance: ALBUTEROL SULFATE
  21. CEFDINIR [Concomitant]
     Active Substance: CEFDINIR
  22. PHAZYME [Concomitant]
     Active Substance: DIMETHICONE 410
  23. LIDOCAINE [Concomitant]
     Active Substance: LIDOCAINE
  24. METOPROLOL SUCCINATE [Concomitant]
     Active Substance: METOPROLOL SUCCINATE
  25. DALIRESP [Concomitant]
     Active Substance: ROFLUMILAST
  26. MAGNESIUM [Concomitant]
     Active Substance: MAGNESIUM
  27. SPIRONOLACTONE [Concomitant]
     Active Substance: SPIRONOLACTONE
  28. PRALUENT [Concomitant]
     Active Substance: ALIROCUMAB
  29. CALCIUM [Concomitant]
     Active Substance: CALCIUM
  30. VASCEPA [Concomitant]
     Active Substance: ICOSAPENT ETHYL
  31. DIPHENHYDRAMINE [Concomitant]
     Active Substance: DIPHENHYDRAMINE
  32. CETIRIZINE HCL [Concomitant]
     Active Substance: CETIRIZINE HYDROCHLORIDE
  33. BUSPIRONE HCL [Concomitant]
     Active Substance: BUSPIRONE HYDROCHLORIDE
  34. TRULICITY [Concomitant]
     Active Substance: DULAGLUTIDE
  35. SENOKOT [Concomitant]
     Active Substance: SENNOSIDES
  36. ASPIRIN [Concomitant]
     Active Substance: ASPIRIN
  37. BENZONATATE [Concomitant]
     Active Substance: BENZONATATE
  38. ROSUVASTATIN CALCIUM [Concomitant]
     Active Substance: ROSUVASTATIN CALCIUM
  39. NEOMYCIN AND POLYMYXIN B SULFATES AND HYDROCORTISONE [Concomitant]
     Active Substance: HYDROCORTISONE\NEOMYCIN SULFATE\POLYMYXIN B SULFATE
  40. LEVOTHYROXINE SODIUM [Concomitant]
     Active Substance: LEVOTHYROXINE SODIUM
  41. MIRALAX [Concomitant]
     Active Substance: POLYETHYLENE GLYCOL 3350
  42. ALENDRONATE SODIUM [Concomitant]
     Active Substance: ALENDRONATE SODIUM
  43. METFORMIN HYDROCHLORIDE [Concomitant]
     Active Substance: METFORMIN HYDROCHLORIDE
  44. GABAPENTIN [Concomitant]
     Active Substance: GABAPENTIN
  45. DILTIAZEM [Concomitant]
     Active Substance: DILTIAZEM
  46. DICLOFENAC SODIUM [Concomitant]
     Active Substance: DICLOFENAC SODIUM
  47. PANTOPRAZOLE [Concomitant]
     Active Substance: PANTOPRAZOLE
  48. COENZYME Q10 [Concomitant]
     Active Substance: DIETARY SUPPLEMENT\UBIDECARENONE
  49. OXYCONTIN [Concomitant]
     Active Substance: OXYCODONE HYDROCHLORIDE
  50. ALBUTEROL [Concomitant]
     Active Substance: ALBUTEROL
  51. LEVOTHYROXINE [Concomitant]
     Active Substance: LEVOTHYROXINE
  52. MONTELUKAST [Concomitant]
     Active Substance: MONTELUKAST
  53. TRAZODONE HCL [Concomitant]
     Active Substance: TRAZODONE HYDROCHLORIDE
  54. LOSARTAN [Concomitant]
     Active Substance: LOSARTAN
  55. GLIPIZIDE [Concomitant]
     Active Substance: GLIPIZIDE
  56. LINZESS [Concomitant]
     Active Substance: LINACLOTIDE
  57. DICLOFENAC [Concomitant]
     Active Substance: DICLOFENAC
  58. LOSARTAN POTASSIUM [Concomitant]
     Active Substance: LOSARTAN POTASSIUM
  59. PANTOPRAZOLE SODIUM [Concomitant]
     Active Substance: PANTOPRAZOLE SODIUM
  60. DULOXETINE HYDROCHLORIDE [Concomitant]
     Active Substance: DULOXETINE HYDROCHLORIDE
  61. MONTELUKAST SODIUM [Concomitant]
     Active Substance: MONTELUKAST SODIUM
  62. METHYLPREDNISOLONE [Concomitant]
     Active Substance: METHYLPREDNISOLONE
  63. CIPROFLOXACIN [Concomitant]
     Active Substance: CIPROFLOXACIN
  64. ACETAMINOPHEN\HYDROCODONE [Concomitant]
     Active Substance: ACETAMINOPHEN\HYDROCODONE
  65. LISINOPRIL [Concomitant]
     Active Substance: LISINOPRIL
  66. ROSUVASTATIN [Concomitant]
     Active Substance: ROSUVASTATIN
  67. PREDNISONE [Concomitant]
     Active Substance: PREDNISONE
  68. CYCLOBENZAPRINE HYDROCHLORIDE [Concomitant]
     Active Substance: CYCLOBENZAPRINE HYDROCHLORIDE
  69. AZITHROMYCIN [Concomitant]
     Active Substance: AZITHROMYCIN
  70. FLUCONAZOLE [Concomitant]
     Active Substance: FLUCONAZOLE
  71. DOXYCYCLINE [Concomitant]
     Active Substance: DOXYCYCLINE
  72. DIPHENHYDRAMINE HYDROCHLORIDE [Concomitant]
     Active Substance: DIPHENHYDRAMINE HYDROCHLORIDE
  73. BASAGLAR KWIKPEN [Concomitant]
     Active Substance: INSULIN GLARGINE
  74. OZEMPIC [Concomitant]
     Active Substance: SEMAGLUTIDE
  75. REPATHA [Concomitant]
     Active Substance: EVOLOCUMAB
  76. ENTRESTO [Concomitant]
     Active Substance: SACUBITRIL\VALSARTAN

REACTIONS (29)
  - Hepatomegaly [Unknown]
  - Splenomegaly [Unknown]
  - Metapneumovirus infection [Recovered/Resolved]
  - Pyrexia [Recovered/Resolved]
  - Food poisoning [Recovered/Resolved]
  - Pneumonia [Recovered/Resolved]
  - Thrombosis [Recovered/Resolved]
  - Cystitis [Recovered/Resolved]
  - Fall [Recovered/Resolved]
  - Pain in extremity [Recovered/Resolved]
  - COVID-19 [Recovered/Resolved]
  - Multiple allergies [Not Recovered/Not Resolved]
  - Arthralgia [Not Recovered/Not Resolved]
  - Nerve injury [Not Recovered/Not Resolved]
  - Pain [Recovered/Resolved]
  - Abdominal discomfort [Recovered/Resolved]
  - Respiratory tract infection [Recovered/Resolved]
  - Chills [Recovered/Resolved]
  - Sinusitis [Recovered/Resolved]
  - Chest discomfort [Recovered/Resolved]
  - Oedema peripheral [Not Recovered/Not Resolved]
  - Bronchitis [Recovered/Resolved]
  - Upper respiratory tract infection [Recovered/Resolved]
  - Dermatitis contact [Recovered/Resolved]
  - Somnolence [Recovered/Resolved]
  - Asthenia [Recovered/Resolved]
  - Pulmonary mass [Unknown]
  - Inappropriate schedule of product administration [Recovered/Resolved]
  - Product dose omission issue [Recovered/Resolved]

NARRATIVE: CASE EVENT DATE: 20220401
